FAERS Safety Report 9735342 (Version 1)
Quarter: 2013Q4

REPORT INFORMATION
  Report Type: Spontaneous
  Country: CA (occurrence: CA)
  Receive Date: 20131206
  Receipt Date: 20131206
  Transmission Date: 20140711
  Serious: Yes (Death, Hospitalization)
  Sender: FDA-Public Use
  Company Number: CA-PFIZER INC-2013346887

PATIENT
  Age: 28 Year
  Sex: Male

DRUGS (9)
  1. IBUPROFEN [Suspect]
     Dosage: UNK
     Route: 065
  2. ACETAMINOPHEN [Suspect]
     Dosage: UNK
     Route: 065
  3. LOCAL ANESTHETIC [Concomitant]
     Indication: ANAESTHESIA
     Dosage: UNK
     Route: 065
  4. RISPERIDONE [Concomitant]
     Indication: POSTOPERATIVE CARE
     Dosage: UNK
     Route: 065
  5. KETOROLAC [Concomitant]
     Dosage: 30 MG, UNK
     Route: 065
  6. GRANISETRON [Concomitant]
     Indication: ANTIEMETIC SUPPORTIVE CARE
     Dosage: 1 MG, UNK
     Route: 065
  7. FENTANYL [Concomitant]
     Dosage: 125 UG, UNK
     Route: 065
  8. SERTRALINE [Concomitant]
     Indication: POSTOPERATIVE CARE
     Dosage: UNK
     Route: 065
  9. OXYCODONE [Concomitant]
     Dosage: 5 MG, UNK
     Route: 065

REACTIONS (1)
  - Procedural complication [Fatal]
